FAERS Safety Report 17131047 (Version 1)
Quarter: 2019Q4

REPORT INFORMATION
  Report Type: Spontaneous
  Country: JP (occurrence: JP)
  Receive Date: 20191209
  Receipt Date: 20191209
  Transmission Date: 20200122
  Serious: Yes (Hospitalization)
  Sender: FDA-Public Use
  Company Number: JP-CELLTRION INC.-2019JP027083

PATIENT

DRUGS (2)
  1. INFLIXIMAB (UNKNOWN) [Suspect]
     Active Substance: INFLIXIMAB
     Indication: RHEUMATOID ARTHRITIS
     Dosage: 3 MG/KG
  2. METHOTREXATE. [Suspect]
     Active Substance: METHOTREXATE
     Indication: RHEUMATOID ARTHRITIS
     Dosage: 4 MG
     Route: 048

REACTIONS (2)
  - Meningitis cryptococcal [Recovered/Resolved]
  - Progressive multifocal leukoencephalopathy [Recovered/Resolved]
